FAERS Safety Report 5874293-8 (Version None)
Quarter: 2008Q3

REPORT INFORMATION
  Report Type: 
  Country: None (occurrence: None)
  Receive Date: 20080908
  Receipt Date: 20080827
  Transmission Date: 20090109
  Serious: Yes (Other)
  Sender: FDA-Public Use
  Company Number: US-ELI_LILLY_AND_COMPANY-US200808002998

PATIENT
  Age: 55 Year
  Sex: Female

DRUGS (2)
  1. XIGRIS [Suspect]
     Indication: SEPSIS
     Dosage: UNK, UNK
     Dates: start: 20080701, end: 20080701
  2. LOVENOX [Concomitant]
     Dosage: UNK, ONE DOSE
     Dates: start: 20080701, end: 20080701

REACTIONS (2)
  - CATHETER SITE HAEMORRHAGE [None]
  - PLATELET COUNT DECREASED [None]
